FAERS Safety Report 8012701-7 (Version None)
Quarter: 2011Q4

REPORT INFORMATION
  Report Type: 
  Country: None (occurrence: None)
  Receive Date: 20111229
  Receipt Date: 20111219
  Transmission Date: 20120403
  Serious: Yes (Other)
  Sender: FDA-Public Use
  Company Number: US-BAYER-2011-122023

PATIENT
  Age: 24 Year
  Sex: Female

DRUGS (1)
  1. MIRENA [Suspect]
     Indication: CONTRACEPTION
     Dosage: 20 MCG/24HR, CONT
     Route: 015
     Dates: start: 20111208

REACTIONS (5)
  - PROCEDURAL PAIN [None]
  - LIMB DISCOMFORT [None]
  - POST PROCEDURAL HAEMORRHAGE [None]
  - PELVIC PAIN [None]
  - HYPOAESTHESIA [None]
